FAERS Safety Report 20506910 (Version 1)
Quarter: 2022Q1

REPORT INFORMATION
  Report Type: Spontaneous
  Country: TW (occurrence: TW)
  Receive Date: 20220223
  Receipt Date: 20220223
  Transmission Date: 20220423
  Serious: Yes (Death, Other)
  Sender: FDA-Public Use
  Company Number: TW-ELI_LILLY_AND_COMPANY-TW202202007997

PATIENT
  Age: 50 Year
  Sex: Female

DRUGS (9)
  1. ALIMTA [Suspect]
     Active Substance: PEMETREXED DISODIUM
     Indication: Non-small cell lung cancer
     Dosage: 500 MG/M2, UNKNOWN
     Route: 065
     Dates: start: 20210610, end: 20210913
  2. ALIMTA [Suspect]
     Active Substance: PEMETREXED DISODIUM
     Dosage: UNK UNK, UNKNOWN
     Route: 065
     Dates: start: 20211211
  3. CYRAMZA [Suspect]
     Active Substance: RAMUCIRUMAB
     Indication: Non-small cell lung cancer
     Dosage: 500 MG, CYCLICAL
     Route: 065
     Dates: start: 20211021
  4. CYRAMZA [Suspect]
     Active Substance: RAMUCIRUMAB
     Dosage: 500 MG, CYCLICAL
     Route: 065
     Dates: start: 20220107
  5. DACOMITINIB [Suspect]
     Active Substance: DACOMITINIB
     Indication: Non-small cell lung cancer
     Dosage: 15 MG, DAILY
     Route: 065
     Dates: start: 20211021
  6. DACOMITINIB [Suspect]
     Active Substance: DACOMITINIB
     Dosage: 30 MG, DAILY
     Route: 065
     Dates: start: 20211103, end: 20211211
  7. OSIMERTINIB [Concomitant]
     Active Substance: OSIMERTINIB
     Indication: Non-small cell lung cancer
     Dosage: UNK UNK, UNKNOWN
     Route: 065
     Dates: start: 20200729, end: 20210720
  8. OSIMERTINIB [Concomitant]
     Active Substance: OSIMERTINIB
     Dosage: UNK UNK, UNKNOWN
     Route: 065
     Dates: start: 20220105
  9. CARBOPLATIN [Concomitant]
     Active Substance: CARBOPLATIN
     Indication: Non-small cell lung cancer
     Dosage: UNK UNK, UNKNOWN
     Route: 065
     Dates: start: 20210610, end: 20210913

REACTIONS (4)
  - Death [Fatal]
  - Pleural effusion [Unknown]
  - Malignant neoplasm progression [Unknown]
  - Metastases to meninges [Unknown]

NARRATIVE: CASE EVENT DATE: 20210823
